FAERS Safety Report 8046884-X (Version None)
Quarter: 2012Q1

REPORT INFORMATION
  Report Type: 
  Country: None (occurrence: None)
  Receive Date: 20120116
  Receipt Date: 20120104
  Transmission Date: 20120608
  Serious: Yes (Other)
  Sender: FDA-Public Use
  Company Number: GB-TEVA-316515ISR

PATIENT
  Age: 31 Year
  Sex: Female

DRUGS (1)
  1. TRAZODONE HCL [Suspect]
     Indication: DEPRESSION
     Route: 048
     Dates: start: 20100601

REACTIONS (2)
  - MATERNAL EXPOSURE DURING PREGNANCY [None]
  - ABORTION SPONTANEOUS [None]
